FAERS Safety Report 18922714 (Version 1)
Quarter: 2021Q1

REPORT INFORMATION
  Report Type: Report from Study
  Country: US (occurrence: US)
  Receive Date: 20210222
  Receipt Date: 20210222
  Transmission Date: 20210420
  Serious: Yes (Other)
  Sender: FDA-Public Use
  Company Number: US-MYLANLABS-2021M1010784

PATIENT
  Age: 77 Year
  Sex: Male

DRUGS (3)
  1. FOLIC ACID. [Concomitant]
     Active Substance: FOLIC ACID
     Indication: PRODUCT USED FOR UNKNOWN INDICATION
     Dosage: 1 MILLIGRAM
     Route: 065
  2. METHOTREXATE. [Suspect]
     Active Substance: METHOTREXATE
     Indication: CARDIAC DISORDER
     Dosage: 15 MILLIGRAM, QW
     Route: 048
  3. METHOTREXATE. [Suspect]
     Active Substance: METHOTREXATE
     Indication: INFLAMMATION

REACTIONS (2)
  - Pneumonitis [Recovering/Resolving]
  - Off label use [Unknown]
